FAERS Safety Report 4884639-5 (Version None)
Quarter: 2006Q1

REPORT INFORMATION
  Report Type: 
  Country: None (occurrence: None)
  Receive Date: 20060119
  Receipt Date: 20060110
  Transmission Date: 20060701
  Serious: Yes (Hospitalization)
  Sender: FDA-Public Use
  Company Number: PR-ABBOTT-06P-131-0321647-00

PATIENT
  Sex: Female
  Weight: 1.87 kg

DRUGS (1)
  1. SYNAGIS INJECTION [Suspect]
     Indication: ANTIVIRAL PROPHYLAXIS
     Route: 030
     Dates: start: 20051120, end: 20051222

REACTIONS (7)
  - APNOEA [None]
  - C-REACTIVE PROTEIN INCREASED [None]
  - HYPOXIA [None]
  - INTESTINAL STENOSIS [None]
  - RESPIRATORY DISTRESS [None]
  - SEPSIS [None]
  - STAPHYLOCOCCAL INFECTION [None]
